APPROVED DRUG PRODUCT: PROBENECID AND COLCHICINE
Active Ingredient: COLCHICINE; PROBENECID
Strength: 0.5MG;500MG
Dosage Form/Route: TABLET;ORAL
Application: A084321 | Product #001
Applicant: BEECHAM LABORATORIES DIV BEECHAM INC
Approved: Approved Prior to Jan 1, 1982 | RLD: No | RS: No | Type: DISCN